FAERS Safety Report 14443464 (Version 2)
Quarter: 2018Q1

REPORT INFORMATION
  Report Type: Spontaneous
  Country: JP (occurrence: JP)
  Receive Date: 20180125
  Receipt Date: 20180207
  Transmission Date: 20180509
  Serious: Yes (Hospitalization, Other)
  Sender: FDA-Public Use
  Company Number: PHJP2018JP001515

PATIENT
  Age: 32 Year
  Sex: Male
  Weight: 102 kg

DRUGS (37)
  1. MENESIT [Concomitant]
     Active Substance: CARBIDOPA\LEVODOPA
     Indication: PARKINSON^S DISEASE
     Dosage: 100 MG,
     Route: 065
  2. BI-SIFROL [Concomitant]
     Active Substance: PRAMIPEXOLE
     Indication: PARKINSON^S DISEASE
     Route: 065
  3. MIRAPEX [Concomitant]
     Active Substance: PRAMIPEXOLE DIHYDROCHLORIDE
     Dosage: 1.125 MG, UNK
     Route: 065
  4. MIRAPEX [Concomitant]
     Active Substance: PRAMIPEXOLE DIHYDROCHLORIDE
     Dosage: 1.875 MG, UNK
     Route: 065
  5. NEODOPASTON [Concomitant]
     Active Substance: CARBIDOPA\LEVODOPA
     Indication: PARKINSON^S DISEASE
     Dosage: 400 MG, UNK
     Route: 065
  6. FP [Concomitant]
     Active Substance: SELEGILINE HYDROCHLORIDE
     Indication: PARKINSON^S DISEASE
     Dosage: 5 MG,
     Route: 065
  7. TRERIEF [Concomitant]
     Active Substance: ZONISAMIDE
     Indication: PARKINSON^S DISEASE
     Dosage: 25 MG,
     Route: 065
  8. NEUPRO [Concomitant]
     Active Substance: ROTIGOTINE
     Dosage: 18 MG, UNK
     Route: 065
  9. NOURIAST [Concomitant]
     Active Substance: ISTRADEFYLLINE
     Indication: PARKINSON^S DISEASE
     Dosage: 20 MG, UNK
     Route: 065
  10. E C DOPAL [Concomitant]
     Indication: PARKINSON^S DISEASE
     Route: 065
  11. CABASER [Concomitant]
     Active Substance: CABERGOLINE
     Indication: PARKINSON^S DISEASE
     Dosage: 1 MG, UNK
     Route: 065
  12. NEUPRO [Concomitant]
     Active Substance: ROTIGOTINE
     Dosage: 27 MG, UNK
     Route: 065
  13. COMTAN [Suspect]
     Active Substance: ENTACAPONE
     Dosage: 100 MG, QD
     Route: 048
  14. MENESIT [Concomitant]
     Active Substance: CARBIDOPA\LEVODOPA
     Dosage: 300 MG,
     Route: 065
  15. MIRAPEX [Concomitant]
     Active Substance: PRAMIPEXOLE DIHYDROCHLORIDE
     Indication: PARKINSON^S DISEASE
     Dosage: 0.5 MG,
     Route: 065
  16. CABASER [Concomitant]
     Active Substance: CABERGOLINE
     Dosage: 1.75 MG, UNK
     Route: 065
  17. COMTAN [Suspect]
     Active Substance: ENTACAPONE
     Indication: PARKINSON^S DISEASE
     Dosage: 200 MG, QD
     Route: 048
  18. SYMMETREL [Suspect]
     Active Substance: AMANTADINE HYDROCHLORIDE
     Dosage: 50 MG, QD
     Route: 048
  19. SYMMETREL [Suspect]
     Active Substance: AMANTADINE HYDROCHLORIDE
     Dosage: 150 MG, QD
     Route: 048
  20. CABASER [Concomitant]
     Active Substance: CABERGOLINE
     Dosage: 1.75 MG, UNK
     Route: 065
  21. ARTANE [Concomitant]
     Active Substance: TRIHEXYPHENIDYL HYDROCHLORIDE
     Indication: PARKINSON^S DISEASE
     Dosage: 2 MG, UNK
     Route: 065
  22. NEUPRO [Concomitant]
     Active Substance: ROTIGOTINE
     Indication: PARKINSON^S DISEASE
     Dosage: 13.5 MG, UNK
     Route: 065
  23. COMTAN [Suspect]
     Active Substance: ENTACAPONE
     Dosage: 300 MG, QD
     Route: 048
     Dates: end: 201708
  24. REQUIP [Concomitant]
     Active Substance: ROPINIROLE HYDROCHLORIDE
     Indication: PARKINSON^S DISEASE
     Dosage: 8 MG,
     Route: 065
  25. FP [Concomitant]
     Active Substance: SELEGILINE HYDROCHLORIDE
     Dosage: 2.5 MG, UNK
     Route: 065
  26. TRERIEF [Concomitant]
     Active Substance: ZONISAMIDE
     Dosage: 25 MG, UNK
     Route: 065
  27. APOKYN [Concomitant]
     Active Substance: APOMORPHINE HYDROCHLORIDE
     Indication: PARKINSON^S DISEASE
     Dosage: 2 MG, PRN
     Route: 058
  28. COMTAN [Suspect]
     Active Substance: ENTACAPONE
     Dosage: 300 MG, QD
     Route: 048
     Dates: start: 2006
  29. COMTAN [Suspect]
     Active Substance: ENTACAPONE
     Dosage: 200 MG, QD
     Route: 048
  30. SYMMETREL [Suspect]
     Active Substance: AMANTADINE HYDROCHLORIDE
     Indication: PARKINSON^S DISEASE
     Dosage: 50 MG, UNK
     Route: 048
  31. MENESIT [Concomitant]
     Active Substance: CARBIDOPA\LEVODOPA
     Dosage: 350 MG,
     Route: 065
  32. MENESIT [Concomitant]
     Active Substance: CARBIDOPA\LEVODOPA
     Dosage: 400 MG,
     Route: 065
  33. MENESIT [Concomitant]
     Active Substance: CARBIDOPA\LEVODOPA
     Dosage: PRN
     Route: 065
  34. FP [Concomitant]
     Active Substance: SELEGILINE HYDROCHLORIDE
     Dosage: 2.5 MG, UNK
     Route: 065
  35. MIRAPEX [Concomitant]
     Active Substance: PRAMIPEXOLE DIHYDROCHLORIDE
     Dosage: 0.25 MG, UNK
     Route: 065
  36. CABASER [Concomitant]
     Active Substance: CABERGOLINE
     Dosage: 2 MG, UNK
     Route: 065
  37. CABASER [Concomitant]
     Active Substance: CABERGOLINE
     Dosage: 1.5 MG, UNK
     Route: 065

REACTIONS (11)
  - Akinesia [Not Recovered/Not Resolved]
  - Musculoskeletal stiffness [Unknown]
  - Impulse-control disorder [Not Recovered/Not Resolved]
  - Tremor [Not Recovered/Not Resolved]
  - Postural reflex impairment [Not Recovered/Not Resolved]
  - Orthostatic hypotension [Unknown]
  - Anger [Unknown]
  - Hyporeflexia [Unknown]
  - Dyskinesia [Not Recovered/Not Resolved]
  - Stress fracture [Unknown]
  - Muscle rigidity [Unknown]

NARRATIVE: CASE EVENT DATE: 2002
